FAERS Safety Report 5300511-0 (Version None)
Quarter: 2007Q2

REPORT INFORMATION
  Report Type: 
  Country: None (occurrence: None)
  Receive Date: 20070418
  Receipt Date: 20070405
  Transmission Date: 20071010
  Serious: Yes (Hospitalization)
  Sender: FDA-Public Use
  Company Number: PHEH2007US04371

PATIENT
  Age: 27 Year
  Sex: Female

DRUGS (2)
  1. ZELNORM [Suspect]
     Indication: IRRITABLE BOWEL SYNDROME
     Dosage: 6 MG, BID
     Route: 048
     Dates: start: 20070319
  2. CONTRACEPTIVES UNS [Concomitant]
     Indication: CONTRACEPTION

REACTIONS (2)
  - ABDOMINAL DISTENSION [None]
  - LOCALISED OEDEMA [None]
